FAERS Safety Report 9420115 (Version 2)
Quarter: 2013Q3

REPORT INFORMATION
  Report Type: Spontaneous
  Country: IT (occurrence: IT)
  Receive Date: 20130725
  Receipt Date: 20130731
  Transmission Date: 20140515
  Serious: Yes (Hospitalization)
  Sender: FDA-Public Use
  Company Number: IT-GLAXOSMITHKLINE-B0910748A

PATIENT
  Age: 3 Month
  Sex: Female

DRUGS (1)
  1. RANITIDINE [Suspect]
     Indication: GASTROOESOPHAGEAL REFLUX DISEASE
     Dosage: 5MGK PER DAY
     Route: 065
     Dates: start: 20130713, end: 20130714

REACTIONS (7)
  - Movement disorder [Recovered/Resolved]
  - Clonus [Unknown]
  - Crying [Unknown]
  - Irritability [Unknown]
  - Muscle spasms [Unknown]
  - Mastication disorder [Unknown]
  - Nervous system disorder [Unknown]
